FAERS Safety Report 5617234-0 (Version None)
Quarter: 2008Q1

REPORT INFORMATION
  Report Type: 
  Country: None (occurrence: None)
  Receive Date: 20080206
  Receipt Date: 20080206
  Transmission Date: 20080703
  Serious: No
  Sender: FDA-Public Use
  Company Number: None

PATIENT
  Age: 60 Year
  Sex: Female
  Weight: 60.3284 kg

DRUGS (6)
  1. KENALOG [Suspect]
     Indication: TRIGGER FINGER
     Dosage: ONE TIME ID
     Route: 023
     Dates: start: 20080201, end: 20080201
  2. KENALOG WITH LIDOCAINE [Concomitant]
  3. VICODIN [Concomitant]
  4. ADVIL [Concomitant]
  5. NAPROXEN [Concomitant]
  6. ATIVAN [Concomitant]

REACTIONS (7)
  - ARTHRALGIA [None]
  - MUSCLE ATROPHY [None]
  - MUSCULAR WEAKNESS [None]
  - NAUSEA [None]
  - OEDEMA PERIPHERAL [None]
  - PAIN IN EXTREMITY [None]
  - SKIN WARM [None]
